FAERS Safety Report 19463682 (Version 2)
Quarter: 2021Q3

REPORT INFORMATION
  Report Type: Report from Study
  Country: US (occurrence: US)
  Receive Date: 20210625
  Receipt Date: 20210709
  Transmission Date: 20211014
  Serious: Yes (Other)
  Sender: FDA-Public Use
  Company Number: NVSC2021US133597

PATIENT
  Age: 46 Year
  Sex: Female

DRUGS (3)
  1. ENTRESTO [Suspect]
     Active Substance: SACUBITRIL\VALSARTAN
     Dosage: UNK UNK, BID
     Route: 048
  2. ENTRESTO [Suspect]
     Active Substance: SACUBITRIL\VALSARTAN
     Indication: PRODUCT USED FOR UNKNOWN INDICATION
     Dosage: UNK UNK, BID
     Route: 048
  3. CARVEDILOL. [Suspect]
     Active Substance: CARVEDILOL
     Indication: PRODUCT USED FOR UNKNOWN INDICATION
     Dosage: UNK
     Route: 065

REACTIONS (31)
  - Atrial fibrillation [Unknown]
  - Tachycardia [Unknown]
  - Menopause [Unknown]
  - Bundle branch block left [Unknown]
  - Movement disorder [Unknown]
  - Weight increased [Unknown]
  - Regurgitation [Unknown]
  - Swelling face [Unknown]
  - Deafness [Unknown]
  - Illness [Unknown]
  - Tremor [Unknown]
  - Decreased activity [Unknown]
  - Emotional disorder [Unknown]
  - Pyrexia [Unknown]
  - Pruritus [Unknown]
  - Fatigue [Unknown]
  - Autonomic nervous system imbalance [Unknown]
  - Cardiac failure [Unknown]
  - Blood urine present [Unknown]
  - Renal disorder [Unknown]
  - Liver disorder [Unknown]
  - Dyspnoea [Unknown]
  - Mitral valve prolapse [Unknown]
  - High density lipoprotein [Unknown]
  - Blood potassium increased [Unknown]
  - Product prescribing error [Unknown]
  - Hot flush [Unknown]
  - Infection [Unknown]
  - Bradycardia [Unknown]
  - Arthralgia [Unknown]
  - Wrong technique in product usage process [Unknown]
